FAERS Safety Report 12902073 (Version 1)
Quarter: 2016Q4

REPORT INFORMATION
  Report Type: Spontaneous
  Country: CN (occurrence: CN)
  Receive Date: 20161102
  Receipt Date: 20161102
  Transmission Date: 20170207
  Serious: Yes (Other)
  Sender: FDA-Public Use
  Company Number: CN-SUN PHARMACEUTICAL INDUSTRIES LTD-2016RR-126859

PATIENT
  Age: 3 Year

DRUGS (4)
  1. WARFARIN [Suspect]
     Active Substance: WARFARIN
     Indication: CORONARY ARTERY DISEASE
  2. ASPIRIN. [Suspect]
     Active Substance: ASPIRIN
     Indication: KAWASAKI^S DISEASE
     Dosage: 3-5 MG/KG QD
     Route: 065
  3. WARFARIN [Suspect]
     Active Substance: WARFARIN
     Indication: KAWASAKI^S DISEASE
     Dosage: 0.05 MG/KG AT FIRST, MAX 0.12 MG/ KG
     Route: 065
  4. ASPIRIN. [Suspect]
     Active Substance: ASPIRIN
     Indication: CORONARY ARTERY DISEASE

REACTIONS (1)
  - Intra-abdominal haemorrhage [Recovered/Resolved]
